FAERS Safety Report 26005825 (Version 2)
Quarter: 2025Q4

REPORT INFORMATION
  Report Type: Spontaneous
  Country: EU (occurrence: EU)
  Receive Date: 20251106
  Receipt Date: 20251118
  Transmission Date: 20260118
  Serious: Yes (Other)
  Sender: AUROBINDO
  Company Number: EU-MLMSERVICE-20251027-PI688911-00202-1

PATIENT
  Age: 53 Year
  Sex: Male

DRUGS (8)
  1. LINEZOLID [Suspect]
     Active Substance: LINEZOLID
     Indication: Corynebacterium infection
     Dosage: 600 MILLIGRAM, TWO TIMES A DAY
     Dates: start: 202202, end: 2022
  2. VANCOMYCIN [Suspect]
     Active Substance: VANCOMYCIN
     Indication: Corynebacterium infection
     Dosage: 15 MILLIGRAM/KILOGRAM
     Dates: start: 202202
  3. DALBAVANCIN [Concomitant]
     Active Substance: DALBAVANCIN
     Indication: Corynebacterium infection
     Dosage: 1500 MILLIGRAM (ON DAYS 0 AND 14)
  4. TEDIZOLID [Concomitant]
     Active Substance: TEDIZOLID
     Indication: Corynebacterium infection
     Dosage: 200 MILLIGRAM, ONCE A DAY
     Route: 065
  5. PIPERACILLIN SODIUM\TAZOBACTAM SODIUM [Concomitant]
     Active Substance: PIPERACILLIN SODIUM\TAZOBACTAM SODIUM
     Indication: Corynebacterium infection
     Dosage: 4.5 GRAM, FOUR TIMES/DAY
     Route: 065
  6. PREDNISONE [Concomitant]
     Active Substance: PREDNISONE
     Indication: Product used for unknown indication
     Dosage: 0.2 MILLIGRAM/KILOGRAM
  7. TACROLIMUS [Concomitant]
     Active Substance: TACROLIMUS
     Indication: Product used for unknown indication
     Route: 065
  8. MYCOPHENOLATE MOFETIL [Concomitant]
     Active Substance: MYCOPHENOLATE MOFETIL
     Indication: Product used for unknown indication
     Route: 065

REACTIONS (5)
  - Corynebacterium infection [Unknown]
  - Pseudomonas infection [Unknown]
  - Inflammation [Unknown]
  - Platelet count decreased [Unknown]
  - Drug ineffective [Unknown]

NARRATIVE: CASE EVENT DATE: 20220101
